FAERS Safety Report 18793875 (Version 2)
Quarter: 2021Q1

REPORT INFORMATION
  Report Type: Other
  Country: US (occurrence: US)
  Receive Date: 20210127
  Receipt Date: 20210304
  Transmission Date: 20210419
  Serious: Yes (Other)
  Sender: FDA-Public Use
  Company Number: US-ROCHE-2750808

PATIENT
  Age: 67 Year
  Sex: Female

DRUGS (1)
  1. OCREVUS [Suspect]
     Active Substance: OCRELIZUMAB
     Indication: PRIMARY PROGRESSIVE MULTIPLE SCLEROSIS
     Dosage: DATE OF TREATMENT WERE 03/MAY/2017, 17/MAY/2017, 01/NOV/2017, 18/APR/2018, 03/OCT/2018, AND 23/JUL/2
     Route: 042

REACTIONS (2)
  - Stenotrophomonas test positive [Unknown]
  - Pseudomonas test positive [Unknown]

NARRATIVE: CASE EVENT DATE: 20200819
